FAERS Safety Report 6844804-4 (Version None)
Quarter: 2010Q3

REPORT INFORMATION
  Report Type: 
  Country: None (occurrence: None)
  Receive Date: 20100713
  Receipt Date: 20100630
  Transmission Date: 20110219
  Serious: Yes (Other)
  Sender: FDA-Public Use
  Company Number: 2010SP037803

PATIENT
  Sex: Female

DRUGS (2)
  1. MIRALAX [Suspect]
     Indication: CONSTIPATION
     Dosage: PO
     Route: 048
     Dates: start: 20100301
  2. FIBER [Concomitant]

REACTIONS (4)
  - ABDOMINAL DISCOMFORT [None]
  - CHOLECYSTECTOMY [None]
  - HERNIA REPAIR [None]
  - MUSCLE SPASMS [None]
